FAERS Safety Report 14267277 (Version 1)
Quarter: 2017Q4

REPORT INFORMATION
  Report Type: Spontaneous
  Country: US (occurrence: US)
  Receive Date: 20171208
  Receipt Date: 20171208
  Transmission Date: 20180321
  Serious: Yes (Disabling)
  Sender: FDA-Public Use
  Company Number: None

PATIENT
  Age: 51 Year
  Sex: Female
  Weight: 67.05 kg

DRUGS (1)
  1. MINIVELLE [Suspect]
     Active Substance: ESTRADIOL
     Indication: HOT FLUSH
     Dosage: QUANTITY:1 PATCH(ES);?
     Route: 062

REACTIONS (10)
  - Somnolence [None]
  - Swelling [None]
  - Pulmonary oedema [None]
  - Speech disorder [None]
  - Pneumonia [None]
  - Fluid retention [None]
  - Feeling abnormal [None]
  - Weight increased [None]
  - Therapy cessation [None]
  - Social avoidant behaviour [None]

NARRATIVE: CASE EVENT DATE: 20171201
